FAERS Safety Report 15989428 (Version 1)
Quarter: 2019Q1

REPORT INFORMATION
  Report Type: Spontaneous
  Country: US (occurrence: US)
  Receive Date: 20190221
  Receipt Date: 20190221
  Transmission Date: 20190418
  Serious: No
  Sender: FDA-Public Use
  Company Number: US-PFIZER INC-2019073838

PATIENT
  Age: 49 Year
  Sex: Female

DRUGS (2)
  1. GENOTROPIN MQ [Suspect]
     Active Substance: SOMATROPIN
     Indication: SEPTO-OPTIC DYSPLASIA
     Dosage: 0.4 MG, DAILY
  2. GENOTROPIN MQ [Suspect]
     Active Substance: SOMATROPIN
     Indication: VITAMIN D DEFICIENCY

REACTIONS (4)
  - Product use in unapproved indication [Unknown]
  - Blood sodium decreased [Unknown]
  - Cortisol decreased [Unknown]
  - Blood chloride decreased [Unknown]

NARRATIVE: CASE EVENT DATE: 20190102
